FAERS Safety Report 11151902 (Version 1)
Quarter: 2015Q2

REPORT INFORMATION
  Report Type: Spontaneous
  Country: US (occurrence: US)
  Receive Date: 20150601
  Receipt Date: 20150601
  Transmission Date: 20150821
  Serious: No
  Sender: FDA-Public Use
  Company Number: US-PFIZER INC-2015182901

PATIENT
  Age: 44 Year
  Sex: Female
  Weight: 78 kg

DRUGS (7)
  1. EPIPEN [Concomitant]
     Active Substance: EPINEPHRINE
  2. BENADRYL [Interacting]
     Active Substance: DIPHENHYDRAMINE HYDROCHLORIDE
     Indication: HYPERSENSITIVITY
     Dosage: 12.5 MG, AS NEEDED
     Route: 048
  3. BC POWDER ARTHRITIS STRENGTH [Concomitant]
     Indication: ARTHRITIS
     Dosage: 1 PACKET A COUPLE OF TIMES A DAY AS NEEDED
     Route: 048
  4. NUVIGIL [Concomitant]
     Active Substance: ARMODAFINIL
     Indication: NARCOLEPSY
     Dosage: 350MG CAPSULE BY MOUTH TWICE A DAY
     Route: 048
  5. LYRICA [Suspect]
     Active Substance: PREGABALIN
     Indication: FIBROMYALGIA
     Dosage: 300 MG, 2X/DAY
     Route: 048
  6. LYRICA [Interacting]
     Active Substance: PREGABALIN
     Indication: LYME DISEASE
  7. LYRICA [Interacting]
     Active Substance: PREGABALIN
     Indication: HERPES ZOSTER

REACTIONS (1)
  - Potentiating drug interaction [Unknown]
